FAERS Safety Report 23489181 (Version 1)
Quarter: 2024Q1

REPORT INFORMATION
  Report Type: Spontaneous
  Country: GB (occurrence: GB)
  Receive Date: 20240206
  Receipt Date: 20240206
  Transmission Date: 20240410
  Serious: No
  Sender: FDA-Public Use
  Company Number: GB-IPSEN Group, Research and Development-2023-23800

PATIENT

DRUGS (1)
  1. CABOZANTINIB [Suspect]
     Active Substance: CABOZANTINIB
     Indication: Ewing^s sarcoma metastatic
     Dosage: UNK
     Route: 065

REACTIONS (1)
  - Off label use [Unknown]
